FAERS Safety Report 10554595 (Version 2)
Quarter: 2015Q1

REPORT INFORMATION
  Report Type: Spontaneous
  Country: DE (occurrence: DE)
  Receive Date: 20141030
  Receipt Date: 20150313
  Transmission Date: 20150720
  Serious: Yes (Life-Threatening, Hospitalization, Disabling, Other)
  Sender: FDA-Public Use
  Company Number: DE-MERCK-1410DEU014870

PATIENT
  Age: 60 Year
  Sex: Male
  Weight: 100 kg

DRUGS (5)
  1. ASPIRIN. [Concomitant]
     Active Substance: ASPIRIN
     Indication: VERTIGO
     Dosage: 100 MG, QD
     Route: 048
  2. HYGROTON [Concomitant]
     Active Substance: CHLORTHALIDONE
     Indication: HYPERTENSION
     Dosage: 1 DOSAGE FORM EVERY DAY
     Route: 048
  3. NOVORAPID [Concomitant]
     Active Substance: INSULIN ASPART
     Indication: TYPE 2 DIABETES MELLITUS
     Dosage: UNK
     Route: 058
  4. JANUVIA [Suspect]
     Active Substance: SITAGLIPTIN PHOSPHATE
     Indication: TYPE 2 DIABETES MELLITUS
     Dosage: 100 MG EVERY DAYS, 100 MG , 1 IN 1 DAY
     Route: 048
     Dates: start: 20101123, end: 201407
  5. ENAHEXAL [Concomitant]
     Active Substance: ENALAPRIL MALEATE
     Indication: HYPERTENSION
     Dosage: 1 DOSAGE FORM EVERY DAY
     Route: 048

REACTIONS (3)
  - Metastases to lymph nodes [Not Recovered/Not Resolved]
  - Squamous cell carcinoma of the oral cavity [Not Recovered/Not Resolved]
  - Squamous cell carcinoma of pharynx [Not Recovered/Not Resolved]

NARRATIVE: CASE EVENT DATE: 201407
